FAERS Safety Report 6790256-2 (Version None)
Quarter: 2010Q2

REPORT INFORMATION
  Report Type: 
  Country: None (occurrence: None)
  Receive Date: 20100624
  Receipt Date: 20100621
  Transmission Date: 20101027
  Serious: No
  Sender: FDA-Public Use
  Company Number: US-JNJFOC-20100606805

PATIENT
  Sex: Male
  Weight: 99.79 kg

DRUGS (4)
  1. DURAGESIC-100 [Suspect]
     Indication: BACK PAIN
     Route: 062
  2. DURAGESIC-100 [Suspect]
     Route: 062
     Dates: start: 20100601
  3. DURAGESIC-100 [Suspect]
     Dosage: 25UG/HR+25UG/HR
     Route: 062
     Dates: start: 20100601
  4. SYNTHROID [Concomitant]
     Indication: HYPERTHYROIDISM
     Route: 048

REACTIONS (6)
  - AFFECTIVE DISORDER [None]
  - HYPERHIDROSIS [None]
  - IRRITABILITY [None]
  - PRODUCT QUALITY ISSUE [None]
  - WITHDRAWAL SYNDROME [None]
  - WRONG TECHNIQUE IN DRUG USAGE PROCESS [None]
